FAERS Safety Report 5930254-1 (Version None)
Quarter: 2008Q4

REPORT INFORMATION
  Report Type: 
  Country: None (occurrence: None)
  Receive Date: 20081024
  Receipt Date: 20081014
  Transmission Date: 20090506
  Serious: Yes (Hospitalization, Other)
  Sender: FDA-Public Use
  Company Number: US-PFIZER INC-2008087880

PATIENT
  Sex: Female
  Weight: 103.9 kg

DRUGS (2)
  1. CHANTIX [Suspect]
     Indication: SMOKING CESSATION THERAPY
     Route: 048
     Dates: start: 20071101
  2. ANTIBIOTICS [Concomitant]

REACTIONS (3)
  - ANAEMIA [None]
  - HAEMORRHAGE [None]
  - NEPHROLITHIASIS [None]
